FAERS Safety Report 13386316 (Version 7)
Quarter: 2018Q1

REPORT INFORMATION
  Report Type: Spontaneous
  Country: IT (occurrence: IT)
  Receive Date: 20170330
  Receipt Date: 20180321
  Transmission Date: 20180508
  Serious: Yes (Hospitalization)
  Sender: FDA-Public Use
  Company Number: IT-ACCORD-049284

PATIENT
  Age: 24 Year
  Sex: Female

DRUGS (3)
  1. QUETIAPINE. [Suspect]
     Active Substance: QUETIAPINE
     Dosage: ONCE/SINGLE
     Route: 048
     Dates: start: 20170222, end: 20170222
  2. FLUOXETINE [Suspect]
     Active Substance: FLUOXETINE HYDROCHLORIDE
     Dosage: ONCE/SINGLE
     Route: 048
     Dates: start: 20170222, end: 20170222
  3. LITHIOFOR [Suspect]
     Active Substance: LITHIUM SULFATE
     Dosage: 450 MG TOTAL
     Route: 048
     Dates: start: 20170222, end: 20170222

REACTIONS (3)
  - Intentional self-injury [Unknown]
  - Intentional overdose [Unknown]
  - Drug abuse [Unknown]

NARRATIVE: CASE EVENT DATE: 20170222
